FAERS Safety Report 15996108 (Version 1)
Quarter: 2019Q1

REPORT INFORMATION
  Report Type: Spontaneous
  Country: PT (occurrence: PT)
  Receive Date: 20190222
  Receipt Date: 20190222
  Transmission Date: 20190418
  Serious: Yes (Other)
  Sender: FDA-Public Use
  Company Number: PT-CIPHER-2019-PT-000001

PATIENT
  Age: 60 Week
  Sex: Female

DRUGS (1)
  1. FENOFIBRATE. [Suspect]
     Active Substance: FENOFIBRATE
     Dosage: 267 MG, QD

REACTIONS (4)
  - Photosensitivity reaction [Unknown]
  - Drug eruption [Unknown]
  - Pruritus [Unknown]
  - Skin burning sensation [Unknown]
